FAERS Safety Report 9745398 (Version 1)
Quarter: 2013Q4

REPORT INFORMATION
  Report Type: Report from Study
  Country: BR (occurrence: BR)
  Receive Date: 20131211
  Receipt Date: 20131211
  Transmission Date: 20140711
  Serious: Yes (Death, Other)
  Sender: FDA-Public Use
  Company Number: PHHY2013BR143788

PATIENT
  Age: 83 Year
  Sex: Female
  Weight: 110 kg

DRUGS (1)
  1. EXELON PATCH [Suspect]
     Indication: DEMENTIA ALZHEIMER^S TYPE
     Dosage: 1 DF, DAILY
     Route: 062
     Dates: start: 201306, end: 201308

REACTIONS (13)
  - Neurogenic bladder [Fatal]
  - Renal failure [Fatal]
  - Haemorrhage [Fatal]
  - Dyspnoea [Fatal]
  - Infection [Fatal]
  - Cerebral thrombosis [Fatal]
  - Hypersensitivity [Fatal]
  - Application site scab [Fatal]
  - Application site erythema [Fatal]
  - Application site reaction [Fatal]
  - Agitation [Fatal]
  - Aggression [Fatal]
  - Fluid retention [Unknown]
